FAERS Safety Report 24399743 (Version 1)
Quarter: 2024Q4

REPORT INFORMATION
  Report Type: Spontaneous
  Country: US (occurrence: US)
  Receive Date: 20241005
  Receipt Date: 20241005
  Transmission Date: 20250115
  Serious: No
  Sender: CSL BEHRING
  Company Number: US-BEH-2024180994

PATIENT
  Age: 40 Year
  Sex: Female

DRUGS (2)
  1. HIZENTRA [Suspect]
     Active Substance: HUMAN IMMUNOGLOBULIN G
     Indication: Hypogammaglobulinaemia
     Dosage: 10 G, QW PFS
     Route: 058
     Dates: start: 202210
  2. HIZENTRA [Suspect]
     Active Substance: HUMAN IMMUNOGLOBULIN G
     Indication: Immunodeficiency common variable

REACTIONS (9)
  - Dyspnoea [Unknown]
  - Decreased appetite [Unknown]
  - Pain [Unknown]
  - Pruritus [Unknown]
  - Headache [Unknown]
  - Pyrexia [Unknown]
  - Peripheral swelling [Unknown]
  - Joint swelling [Unknown]
  - Swelling [Unknown]
